FAERS Safety Report 8609058-7 (Version None)
Quarter: 2012Q3

REPORT INFORMATION
  Report Type: 
  Country: None (occurrence: None)
  Receive Date: 20120821
  Receipt Date: 19950307
  Transmission Date: 20120928
  Serious: Yes (Other)
  Sender: FDA-Public Use
  Company Number: US-ROCHE-1100830

PATIENT
  Age: 40 Year
  Sex: Male

DRUGS (19)
  1. ACTIVASE [Suspect]
     Indication: ACUTE MYOCARDIAL INFARCTION
     Dates: start: 19950104
  2. NITROGLYCERIN [Concomitant]
     Dosage: 70MCG/HR
     Route: 042
     Dates: start: 19950104
  3. NITROGLYCERIN [Concomitant]
     Dosage: 20 MCG/HR
     Route: 042
     Dates: start: 19950104
  4. NITROGLYCERIN [Concomitant]
     Dosage: 30 MCG/MIN
     Route: 042
     Dates: start: 19950104
  5. MORPHINE [Concomitant]
     Route: 042
     Dates: start: 19950112
  6. MORPHINE [Concomitant]
     Route: 042
     Dates: start: 19950112
  7. ACTIVASE [Suspect]
     Route: 041
  8. NITROGLYCERIN [Concomitant]
     Dosage: 50MCG/HR
     Route: 042
     Dates: start: 19950104
  9. NITROGLYCERIN [Concomitant]
     Dosage: 40 MCG/MIN
     Route: 042
     Dates: start: 19950104
  10. NITROGLYCERIN [Concomitant]
     Dosage: 60 MCG/MIN
     Route: 042
     Dates: start: 19950104
  11. HEPARIN [Concomitant]
     Route: 042
  12. MORPHINE [Concomitant]
     Route: 042
     Dates: start: 19950112
  13. ATROPINE [Concomitant]
     Dates: start: 19950112
  14. NITROGLYCERIN [Concomitant]
     Dosage: 80 MCG/MIN
     Route: 042
     Dates: start: 19950104
  15. MORPHINE [Concomitant]
     Route: 042
     Dates: start: 19950112
  16. MORPHINE [Concomitant]
     Route: 042
     Dates: start: 19950112
  17. ACTIVASE [Suspect]
     Route: 041
     Dates: start: 19950112
  18. NITROGLYCERIN [Concomitant]
     Dosage: 10 MCG/MIN
     Route: 042
     Dates: start: 19950104
  19. MORPHINE [Concomitant]
     Route: 042
     Dates: start: 19950112

REACTIONS (3)
  - PAIN [None]
  - VENTRICULAR EXTRASYSTOLES [None]
  - NO THERAPEUTIC RESPONSE [None]
